FAERS Safety Report 16721422 (Version 1)
Quarter: 2019Q3

REPORT INFORMATION
  Report Type: Spontaneous
  Country: JP (occurrence: JP)
  Receive Date: 20190820
  Receipt Date: 20190820
  Transmission Date: 20191005
  Serious: Yes (Hospitalization, Other)
  Sender: FDA-Public Use
  Company Number: JP-PFIZER INC-2019348314

PATIENT
  Age: 92 Year
  Sex: Female
  Weight: 28 kg

DRUGS (9)
  1. RHEUMATREX [Suspect]
     Active Substance: METHOTREXATE SODIUM
     Dosage: UNK
     Dates: start: 201902, end: 201902
  2. ACINON [NIZATIDINE] [Concomitant]
     Dosage: UNK
     Dates: start: 20170329
  3. PREDNISOLONE. [Concomitant]
     Active Substance: PREDNISOLONE
     Dosage: UNK (1 ^HOEI^)
     Dates: start: 20170329
  4. RHEUMATREX [Suspect]
     Active Substance: METHOTREXATE SODIUM
     Dosage: 4 MG, WEEKLY
     Route: 048
     Dates: start: 201902, end: 20190312
  5. RISEDRONATE SODIUM HYDRATE [Concomitant]
     Active Substance: RISEDRONATE SODIUM
     Dosage: UNK
     Dates: start: 20170329
  6. LOXOPROFEN SODIUM DIHYDRATE [Concomitant]
     Active Substance: LOXOPROFEN SODIUM DIHYDRATE
     Dosage: UNK
     Dates: start: 20170329
  7. ROSUVASTATIN CALCIUM. [Concomitant]
     Active Substance: ROSUVASTATIN CALCIUM
     Dosage: UNK
     Dates: start: 20170329
  8. AZULFIDINE EN-TABS [Concomitant]
     Active Substance: SULFASALAZINE
     Dosage: UNK
     Dates: start: 20170329
  9. RHEUMATREX [Suspect]
     Active Substance: METHOTREXATE SODIUM
     Indication: RHEUMATOID ARTHRITIS
     Dosage: 4 MG, WEEKLY
     Route: 048
     Dates: start: 20110406, end: 201901

REACTIONS (12)
  - Diarrhoea [Unknown]
  - Stomatitis [Unknown]
  - Mouth ulceration [Unknown]
  - Rash pruritic [Unknown]
  - Decreased appetite [Unknown]
  - Inflammation [Unknown]
  - Purpura [Unknown]
  - Gastrointestinal viral infection [Unknown]
  - Inappropriate schedule of product administration [Unknown]
  - Tooth socket haemorrhage [Unknown]
  - Fall [Unknown]
  - Pancytopenia [Recovered/Resolved]

NARRATIVE: CASE EVENT DATE: 201901
